FAERS Safety Report 7494428-3 (Version None)
Quarter: 2011Q2

REPORT INFORMATION
  Report Type: 
  Country: None (occurrence: None)
  Receive Date: 20110520
  Receipt Date: 20110517
  Transmission Date: 20111010
  Serious: Yes (Other)
  Sender: FDA-Public Use
  Company Number: US-PFIZER INC-2011106659

PATIENT
  Sex: Female

DRUGS (4)
  1. PRISTIQ [Suspect]
     Indication: DEPRESSION
     Dosage: 50 MG, UNK
  2. PRISTIQ [Suspect]
     Dosage: 100 MG, UNK
  3. WELLBUTRIN [Concomitant]
  4. EFFEXOR XR [Suspect]
     Dosage: UNK

REACTIONS (3)
  - ANGER [None]
  - IRRITABILITY [None]
  - VIOLENCE-RELATED SYMPTOM [None]
